FAERS Safety Report 9262343 (Version 1)
Quarter: 2013Q2

REPORT INFORMATION
  Report Type: Spontaneous
  Country: CZ (occurrence: CZ)
  Receive Date: 20130430
  Receipt Date: 20130430
  Transmission Date: 20140414
  Serious: Yes (Other)
  Sender: FDA-Public Use
  Company Number: PHHY2013CZ038371

PATIENT
  Sex: Female

DRUGS (8)
  1. LETROZOLE [Suspect]
     Dates: start: 200404
  2. ZOLEDRONATE [Suspect]
     Route: 042
     Dates: start: 200607, end: 200805
  3. CAPECITABINE [Suspect]
     Dates: start: 200607, end: 200805
  4. PACLITAXEL [Suspect]
     Dates: start: 201004
  5. BISPHOSPHONATES [Suspect]
     Route: 048
     Dates: start: 200404
  6. FASLODEX [Suspect]
  7. NAVELBINE [Suspect]
     Route: 048
     Dates: start: 200805
  8. ERIBULIN MESILATE [Suspect]

REACTIONS (7)
  - Ascites [Recovered/Resolved]
  - Metastases to bone [Unknown]
  - Metastases to liver [Unknown]
  - Malignant neoplasm progression [Unknown]
  - Back pain [Unknown]
  - Cell marker increased [Recovering/Resolving]
  - Drug resistance [Unknown]
